FAERS Safety Report 4436268-5 (Version None)
Quarter: 2004Q3

REPORT INFORMATION
  Report Type: 
  Country: None (occurrence: None)
  Receive Date: 20040830
  Receipt Date: 20040617
  Transmission Date: 20050211
  Serious: No
  Sender: FDA-Public Use
  Company Number: US-BRISTOL-MYERS SQUIBB COMPANY-12617908

PATIENT
  Age: 7 Decade
  Sex: Female

DRUGS (3)
  1. ERBITUX [Suspect]
     Indication: COLON CANCER METASTATIC
     Dosage: TEST DOSE ADMINISTERED.
     Route: 042
     Dates: start: 20040617, end: 20040617
  2. BENADRYL [Concomitant]
     Indication: PREMEDICATION
     Dates: start: 20040617, end: 20040617
  3. TYLENOL [Concomitant]
     Indication: PREMEDICATION
     Dates: start: 20040617, end: 20040617

REACTIONS (1)
  - RASH [None]
